FAERS Safety Report 24547146 (Version 1)
Quarter: 2024Q4

REPORT INFORMATION
  Report Type: Report from Study
  Country: CN (occurrence: CN)
  Receive Date: 20241025
  Receipt Date: 20241025
  Transmission Date: 20250115
  Serious: Yes (Hospitalization)
  Sender: RIGEL PHARMACEUTICALS
  Company Number: CH-RIGEL Pharmaceuticals, INC-20241000185

PATIENT
  Sex: Female

DRUGS (3)
  1. PRALSETINIB [Suspect]
     Active Substance: PRALSETINIB
     Indication: Non-small cell lung cancer
     Dosage: UNK
     Route: 048
     Dates: start: 202407
  2. PRALSETINIB [Suspect]
     Active Substance: PRALSETINIB
     Dosage: 200 MG, QD
     Route: 048
     Dates: start: 202302, end: 202406
  3. AVAPRITINIB [Concomitant]
     Active Substance: AVAPRITINIB
     Indication: Product used for unknown indication
     Dosage: UNK

REACTIONS (4)
  - Interstitial lung disease [Recovering/Resolving]
  - Pain [Recovering/Resolving]
  - Cough [Recovering/Resolving]
  - Pyrexia [Recovering/Resolving]

NARRATIVE: CASE EVENT DATE: 20240101
